FAERS Safety Report 11982395 (Version 3)
Quarter: 2016Q4

REPORT INFORMATION
  Report Type: Spontaneous
  Country: US (occurrence: US)
  Receive Date: 20160201
  Receipt Date: 20161101
  Transmission Date: 20170206
  Serious: No
  Sender: FDA-Public Use
  Company Number: US-ALEXION-A201600338

PATIENT
  Sex: Female

DRUGS (1)
  1. SOLIRIS [Suspect]
     Active Substance: ECULIZUMAB
     Indication: HAEMOLYTIC URAEMIC SYNDROME
     Dosage: 1200 MG, Q2W
     Route: 042
     Dates: end: 20160414

REACTIONS (4)
  - Exposure during pregnancy [Recovered/Resolved]
  - Asthenia [Not Recovered/Not Resolved]
  - Exposure during breast feeding [Unknown]
  - Nausea [Not Recovered/Not Resolved]
